FAERS Safety Report 9570579 (Version 1)
Quarter: 2013Q3

REPORT INFORMATION
  Report Type: Spontaneous
  Country: US (occurrence: None)
  Receive Date: 20130926
  Receipt Date: 20130926
  Transmission Date: 20140515
  Serious: Yes (Other)
  Sender: FDA-Public Use
  Company Number: None

PATIENT
  Age: 56 Year
  Sex: Male
  Weight: 63.5 kg

DRUGS (2)
  1. LEVAQUIN [Suspect]
     Indication: SINUSITIS
     Dosage: 1 PILL ONCE DAILY TAKEN BY MOUTH
     Dates: start: 20130408, end: 20130429
  2. LEVAQUIN [Suspect]
     Indication: BRONCHITIS
     Dosage: 1 PILL ONCE DAILY TAKEN BY MOUTH
     Dates: start: 20130408, end: 20130429

REACTIONS (2)
  - Tendon pain [None]
  - Tendon rupture [None]
